FAERS Safety Report 6917266-6 (Version None)
Quarter: 2010Q3

REPORT INFORMATION
  Report Type: 
  Country: None (occurrence: None)
  Receive Date: 20100810
  Receipt Date: 20100802
  Transmission Date: 20110219
  Serious: Yes (Disabling, Other)
  Sender: FDA-Public Use
  Company Number: US-MERCK-0811USA04248

PATIENT
  Age: 53 Year
  Sex: Female

DRUGS (3)
  1. FOSAMAX [Suspect]
     Indication: OSTEOPOROSIS
     Route: 048
     Dates: start: 20010301, end: 20050531
  2. XANAX [Concomitant]
     Indication: NERVOUSNESS
     Route: 065
     Dates: start: 19800101
  3. BONIVA [Concomitant]
     Route: 048
     Dates: start: 20050601, end: 20070831

REACTIONS (43)
  - ACNE [None]
  - ACTINIC KERATOSIS [None]
  - ANAEMIA [None]
  - ANAESTHETIC COMPLICATION [None]
  - ARTHRALGIA [None]
  - BASAL CELL CARCINOMA [None]
  - BLADDER CANCER [None]
  - BONE DENSITY DECREASED [None]
  - BONE DISORDER [None]
  - BRONCHITIS [None]
  - COLITIS MICROSCOPIC [None]
  - CYSTITIS [None]
  - DRUG INEFFECTIVE [None]
  - ENTEROCELE [None]
  - EXOSTOSIS [None]
  - FALL [None]
  - FATIGUE [None]
  - GENITAL HERPES [None]
  - HORMONE LEVEL ABNORMAL [None]
  - INSOMNIA [None]
  - JAW DISORDER [None]
  - LEUKOPLAKIA [None]
  - LIBIDO DISORDER [None]
  - LIPOMA [None]
  - LYMPHANGITIS [None]
  - MUSCULOSKELETAL STIFFNESS [None]
  - NAUSEA [None]
  - NEUROPATHY PERIPHERAL [None]
  - NIGHT SWEATS [None]
  - ORAL TORUS [None]
  - OSTEOMYELITIS [None]
  - OSTEONECROSIS OF JAW [None]
  - OTITIS MEDIA ACUTE [None]
  - PELVIC FLOOR DYSSYNERGIA [None]
  - PELVIC PROLAPSE [None]
  - RASH [None]
  - RECTOCELE [None]
  - RESPIRATORY DISORDER [None]
  - SALIVARY GLAND ENLARGEMENT [None]
  - SIALOADENITIS [None]
  - SKIN LACERATION [None]
  - TRIGEMINAL NEURALGIA [None]
  - UPPER RESPIRATORY TRACT INFECTION [None]
